FAERS Safety Report 17363798 (Version 2)
Quarter: 2020Q1

REPORT INFORMATION
  Report Type: Spontaneous
  Country: JP (occurrence: JP)
  Receive Date: 20200203
  Receipt Date: 20200207
  Transmission Date: 20200409
  Serious: Yes (Other)
  Sender: FDA-Public Use
  Company Number: JP-ANIPHARMA-2020-JP-000026

PATIENT
  Sex: Male

DRUGS (1)
  1. CASODEX [Suspect]
     Active Substance: BICALUTAMIDE
     Indication: PROSTATE CANCER
     Dosage: 80 MG QD
     Route: 048

REACTIONS (4)
  - Metastatic neoplasm [Unknown]
  - Off label use [Unknown]
  - Drug interaction [Unknown]
  - Malignant neoplasm progression [Unknown]
